FAERS Safety Report 7651001-1 (Version None)
Quarter: 2011Q3

REPORT INFORMATION
  Report Type: 
  Country: None (occurrence: None)
  Receive Date: 20110802
  Receipt Date: 20110728
  Transmission Date: 20111222
  Serious: Yes (Death, Hospitalization)
  Sender: FDA-Public Use
  Company Number: US-CELGENEUS-163-21660-11071313

PATIENT
  Sex: Female
  Weight: 71.278 kg

DRUGS (45)
  1. TIGATUZUMAB [Suspect]
     Dosage: 5 MILLIGRAM/KILOGRAM
     Route: 041
     Dates: start: 20110620, end: 20110620
  2. FENTANYL [Concomitant]
     Dosage: /HR
     Route: 062
  3. OXYCODONE HCL [Concomitant]
     Dosage: 30 MILLIGRAM
     Route: 048
  4. LEVOPHED [Concomitant]
     Indication: VASOPRESSIVE THERAPY
     Route: 065
  5. CLONIDINE [Concomitant]
     Dosage: 2.5
     Route: 061
  6. ABRAXANE [Suspect]
     Indication: BREAST CANCER
     Dosage: 100 MILLIGRAM/SQ. METER
     Route: 041
     Dates: start: 20110607, end: 20110607
  7. LOVENOX [Concomitant]
     Indication: PULMONARY EMBOLISM
     Route: 065
  8. ZOSYN [Concomitant]
     Indication: CHOLECYSTITIS
     Dosage: 3.375 GRAM
     Route: 041
  9. FENTANYL [Concomitant]
     Dosage: 1
     Route: 062
  10. TRAZODONE HYDROCHLORIDE [Concomitant]
     Indication: INSOMNIA
     Dosage: 50 MILLIGRAM
     Route: 048
  11. ABRAXANE [Suspect]
     Dosage: 100 MILLIGRAM/SQ. METER
     Route: 041
     Dates: start: 20110613, end: 20110613
  12. COMPAZINE [Concomitant]
     Indication: NAUSEA
     Dosage: 1ML
     Route: 041
  13. ZOFRAN [Concomitant]
     Dosage: 4ML
     Route: 041
  14. ALBUTEROL SULFATE AUTOHALER [Concomitant]
     Dosage: 3MG/0.5MG/3ML
     Route: 055
  15. FENTANYL [Concomitant]
     Dosage: /HR
     Route: 062
  16. VANCOMYCIN [Concomitant]
     Dosage: 1 GRAM
     Route: 041
  17. ABRAXANE [Suspect]
     Dosage: 100 MILLIGRAM/SQ. METER
     Route: 041
     Dates: start: 20110620, end: 20110620
  18. OXYGEN [Concomitant]
     Dosage: 4L
     Route: 045
  19. MORPHINE [Concomitant]
     Indication: BREAKTHROUGH PAIN
     Dosage: 1ML
     Route: 041
  20. ONDANSETRON [Concomitant]
     Indication: VOMITING
  21. OXYCODONE HCL [Concomitant]
     Indication: PAIN
     Dosage: 40 MILLIGRAM
     Route: 048
  22. AZITHROMYCIN [Concomitant]
     Route: 065
  23. TIGATUZUMAB [Suspect]
     Indication: BREAST CANCER
     Dosage: 5 MILLIGRAM/KILOGRAM
     Route: 041
     Dates: start: 20110607, end: 20110607
  24. COMPAZINE [Concomitant]
     Indication: VOMITING
  25. ACETAMINOPHEN [Concomitant]
     Dosage: 2 TABS
     Route: 048
  26. ESOMEPRAZOLE MAGNESIUM [Concomitant]
     Dosage: 40 MILLIGRAM
     Route: 041
  27. FENTANYL [Concomitant]
     Dosage: 0.5ML
     Route: 041
  28. LORAZEPAM [Concomitant]
     Dosage: 1ML
     Route: 041
  29. ONDANSETRON [Concomitant]
     Indication: NAUSEA
     Dosage: 2ML
     Route: 041
  30. OXYCODONE HCL [Concomitant]
     Dosage: 2 TABS
     Route: 048
  31. OXYCODONE/ACETAMINOPHEN [Concomitant]
     Indication: BREAKTHROUGH PAIN
     Dosage: 5MG-325MG
     Route: 048
  32. GABAPENTIN [Concomitant]
     Dosage: 300 MILLIGRAM
     Route: 048
  33. ANTIBIOTICS [Concomitant]
     Indication: CELLULITIS
     Route: 065
  34. LASIX [Concomitant]
     Dosage: 4ML
     Route: 041
  35. FENTANYL [Concomitant]
     Dosage: 2ML
     Route: 041
  36. FENTANYL [Concomitant]
     Dosage: /HR
     Route: 062
  37. LORAZEPAM [Concomitant]
     Indication: ANXIETY
     Dosage: 1ML
     Route: 041
  38. MIDAZOLAM HCL [Concomitant]
     Indication: AGITATION
     Dosage: 2ML
     Route: 041
  39. SODIUM CHLORIDE [Concomitant]
     Dosage: 100ML
     Route: 041
  40. SODIUM CHLORIDE [Concomitant]
     Dosage: 2 L
     Route: 065
  41. LOVENOX [Concomitant]
  42. ENOXAPARIN [Concomitant]
     Dosage: 0.8ML
     Route: 058
  43. FENTANYL [Concomitant]
     Dosage: 1.5ML
     Route: 041
  44. NOREPINEPHERINE ADDITIVE + SODIUM CHLORIDE [Concomitant]
     Dosage: 20MCG/MIN(37.5ML/HR)
     Route: 041
  45. BACTRIM [Concomitant]
     Indication: PROPHYLAXIS
     Route: 065

REACTIONS (5)
  - RENAL FAILURE ACUTE [None]
  - SWELLING [None]
  - INFLAMMATORY CARCINOMA OF THE BREAST [None]
  - ACUTE RESPIRATORY FAILURE [None]
  - SEPTIC SHOCK [None]
